FAERS Safety Report 18315488 (Version 1)
Quarter: 2020Q3

REPORT INFORMATION
  Report Type: Spontaneous
  Country: US (occurrence: US)
  Receive Date: 20200926
  Receipt Date: 20200926
  Transmission Date: 20201103
  Serious: Yes (Other)
  Sender: FDA-Public Use
  Company Number: US-AMGEN-USASP2020152004

PATIENT
  Age: 86 Year
  Sex: Female

DRUGS (4)
  1. METOPROLOL. [Concomitant]
     Active Substance: METOPROLOL
     Indication: HYPERTENSION
     Dosage: UNK
  2. PROLIA [Suspect]
     Active Substance: DENOSUMAB
     Indication: OSTEOPOROSIS POSTMENOPAUSAL
     Dosage: UNK
     Route: 065
  3. MAGNESIUM [Concomitant]
     Active Substance: MAGNESIUM
  4. VITAMIN D3 [Concomitant]
     Active Substance: CHOLECALCIFEROL
     Dosage: 2000 MICROGRAM

REACTIONS (13)
  - Macular degeneration [Unknown]
  - Paranasal sinus discomfort [Unknown]
  - Dyspepsia [Unknown]
  - Hypoacusis [Unknown]
  - Bronchitis [Unknown]
  - Back pain [Unknown]
  - Jaw disorder [Unknown]
  - Nuchal rigidity [Unknown]
  - Muscle spasms [Unknown]
  - Dysphonia [Unknown]
  - Blood calcium increased [Unknown]
  - Arthralgia [Not Recovered/Not Resolved]
  - Pain in extremity [Unknown]

NARRATIVE: CASE EVENT DATE: 2020
